FAERS Safety Report 24364368 (Version 2)
Quarter: 2025Q2

REPORT INFORMATION
  Report Type: Spontaneous
  Country: US (occurrence: US)
  Receive Date: 20240926
  Receipt Date: 20250424
  Transmission Date: 20250716
  Serious: Yes (Other)
  Sender: JOHNSON AND JOHNSON
  Company Number: US-JNJFOC-20240963103

PATIENT
  Age: 54 Year
  Sex: Male

DRUGS (4)
  1. SPRAVATO [Suspect]
     Active Substance: ESKETAMINE
     Indication: Depression
     Route: 045
     Dates: start: 20240415, end: 20240419
  2. LAMICTAL [Concomitant]
     Active Substance: LAMOTRIGINE
     Indication: Mental disorder
     Dates: start: 20220201
  3. GUANFACINE [Concomitant]
     Active Substance: GUANFACINE
     Indication: Attention deficit hyperactivity disorder
     Dates: start: 20250307
  4. PRASUGREL [Concomitant]
     Active Substance: PRASUGREL
     Indication: Cardiac disorder
     Dates: start: 2025

REACTIONS (2)
  - Myocardial infarction [Unknown]
  - Depression [Unknown]

NARRATIVE: CASE EVENT DATE: 20240101
